FAERS Safety Report 6454927-X (Version None)
Quarter: 2009Q4

REPORT INFORMATION
  Report Type: 
  Country: None (occurrence: None)
  Receive Date: 20091124
  Receipt Date: 20090426
  Transmission Date: 20100525
  Serious: No
  Sender: FDA-Public Use
  Company Number: US-AMGEN-KDL344538

PATIENT
  Sex: Male

DRUGS (4)
  1. ENBREL [Suspect]
     Indication: RHEUMATOID ARTHRITIS
     Route: 058
     Dates: start: 20001006
  2. ENBREL [Suspect]
     Indication: PSORIATIC ARTHROPATHY
  3. ENBREL [Suspect]
     Indication: OSTEOARTHRITIS
  4. ENBREL [Suspect]
     Indication: DRUG USE FOR UNKNOWN INDICATION

REACTIONS (1)
  - HYPERTENSION [None]
